FAERS Safety Report 9109409 (Version 2)
Quarter: 2013Q1

REPORT INFORMATION
  Report Type: Spontaneous
  Country: DE (occurrence: DE)
  Receive Date: 20130121
  Receipt Date: 20130121
  Transmission Date: 20140127
  Serious: Yes (Other)
  Sender: FDA-Public Use
  Company Number: DE-BAYER-2013-001994

PATIENT
  Age: 64 Year
  Sex: Male
  Weight: 72 kg

DRUGS (8)
  1. XARELTO [Suspect]
     Indication: HEART VALVE OPERATION
     Dosage: 20 MG, UNK
     Dates: start: 20121213, end: 20130103
  2. XARELTO [Interacting]
     Indication: ATRIAL FIBRILLATION
     Dosage: UNK
     Dates: start: 20121213, end: 20130103
  3. XARELTO [Interacting]
     Indication: CEREBROVASCULAR ACCIDENT PROPHYLAXIS
  4. ACETYLSALICYLIC ACID({=100 MG) [Interacting]
     Dosage: 100 MG, QD
     Dates: end: 20130105
  5. DRONEDARONE [Concomitant]
     Indication: ATRIAL FIBRILLATION
     Dosage: 400 MG, BID
     Dates: start: 20121213
  6. BISOPROLOL [Concomitant]
     Indication: HYPERTENSION
     Dosage: 5 MG, BID
  7. PANTOZOL [Concomitant]
     Dosage: 20 MG, UNK
  8. PANTOZOL [Concomitant]
     Dosage: 40 MG, UNK

REACTIONS (7)
  - Haematochezia [Recovering/Resolving]
  - Blood urine present [Recovering/Resolving]
  - Haemoglobin decreased [Recovering/Resolving]
  - Gastrointestinal haemorrhage [Recovering/Resolving]
  - Haematuria [Recovering/Resolving]
  - Drug interaction [None]
  - Off label use [None]
